FAERS Safety Report 5475884-9 (Version None)
Quarter: 2007Q4

REPORT INFORMATION
  Report Type: 
  Country: None (occurrence: None)
  Receive Date: 20071003
  Receipt Date: 20070927
  Transmission Date: 20080405
  Serious: Yes (Death)
  Sender: FDA-Public Use
  Company Number: GB-BRISTOL-MYERS SQUIBB COMPANY-13921366

PATIENT

DRUGS (4)
  1. ETOPOSIDE [Suspect]
     Indication: GERM CELL CANCER
  2. CISPLATIN [Suspect]
     Indication: GERM CELL CANCER
  3. METHOTREXATE [Suspect]
     Indication: GERM CELL CANCER
  4. ACTINOMYCIN-D [Suspect]
     Indication: GERM CELL CANCER

REACTIONS (1)
  - INTRA-ABDOMINAL HAEMORRHAGE [None]
